FAERS Safety Report 19627852 (Version 1)
Quarter: 2021Q3

REPORT INFORMATION
  Report Type: Report from Study
  Country: CA (occurrence: CA)
  Receive Date: 20210728
  Receipt Date: 20210728
  Transmission Date: 20211014
  Serious: Yes (Hospitalization)
  Sender: FDA-Public Use
  Company Number: CA-PFIZER INC-2021887848

PATIENT
  Sex: Female

DRUGS (5)
  1. CERTOLIZUMAB PEGOL [Suspect]
     Active Substance: CERTOLIZUMAB PEGOL
     Dosage: 400 MG, EVERY 4 WEEKS
     Route: 058
  2. TYLENOL 8 HR ARTHRITIS PAIN [Concomitant]
     Active Substance: ACETAMINOPHEN
  3. CELEBREX [Suspect]
     Active Substance: CELECOXIB
  4. CERTOLIZUMAB PEGOL [Suspect]
     Active Substance: CERTOLIZUMAB PEGOL
     Indication: ANKYLOSING SPONDYLITIS
     Dosage: 200 MG, EVERY 2 WEEKS
     Route: 058
  5. CERTOLIZUMAB PEGOL [Suspect]
     Active Substance: CERTOLIZUMAB PEGOL
     Dosage: 400 MG, EVERY 2 WEEKS
     Route: 058

REACTIONS (9)
  - Skin disorder [Unknown]
  - Sleep disorder [Unknown]
  - Malaise [Unknown]
  - Burning sensation [Unknown]
  - Lethargy [Unknown]
  - Oral surgery [Unknown]
  - Therapeutic response decreased [Unknown]
  - Feeling abnormal [Unknown]
  - Product storage error [Unknown]
